FAERS Safety Report 8292481-0 (Version None)
Quarter: 2012Q2

REPORT INFORMATION
  Report Type: 
  Country: None (occurrence: None)
  Receive Date: 20120417
  Receipt Date: 20110308
  Transmission Date: 20120825
  Serious: No
  Sender: FDA-Public Use
  Company Number: US-ASTRAZENECA-2011SE13267

PATIENT
  Age: 65 Year
  Sex: Male
  Weight: 104.3 kg

DRUGS (13)
  1. NEXIUM [Suspect]
     Indication: GASTROOESOPHAGEAL REFLUX DISEASE
     Route: 048
     Dates: start: 20050101
  2. COREG [Concomitant]
     Indication: CORONARY ARTERY DISEASE
  3. PLAVIX [Concomitant]
  4. VITAMIN D [Concomitant]
  5. OMEPRAZOLE [Concomitant]
  6. GLYBERIDE [Concomitant]
  7. HYDROCHLOROTHIAZIDE [Concomitant]
  8. WELLBUTRIN [Concomitant]
  9. TRIENTERINE [Concomitant]
  10. TRILIPIX [Concomitant]
  11. ASPIRIN [Concomitant]
  12. LANTUS [Concomitant]
  13. FISH OIL [Concomitant]

REACTIONS (3)
  - DRUG DOSE OMISSION [None]
  - CLAVICLE FRACTURE [None]
  - FALL [None]
